FAERS Safety Report 5130289-5 (Version None)
Quarter: 2006Q4

REPORT INFORMATION
  Report Type: 
  Country: None (occurrence: None)
  Receive Date: 20061019
  Receipt Date: 20061011
  Transmission Date: 20070319
  Serious: Yes (Hospitalization, Disabling)
  Sender: FDA-Public Use
  Company Number: 2006AP04834

PATIENT
  Age: 961 Month
  Sex: Male
  Weight: 48 kg

DRUGS (7)
  1. OMEPRAZOLE [Suspect]
     Indication: GASTRIC ULCER
     Route: 048
     Dates: end: 20060914
  2. CHOLEXAMIN [Suspect]
     Route: 048
     Dates: start: 20060315, end: 20060601
  3. CHOLEXAMIN [Suspect]
     Route: 048
     Dates: start: 20060601, end: 20060908
  4. CEPHADOL [Concomitant]
     Route: 048
     Dates: end: 20060914
  5. VASOLAN [Concomitant]
     Route: 048
     Dates: end: 20060914
  6. CERNILTON [Concomitant]
     Route: 048
     Dates: end: 20060914
  7. SOLANAX [Concomitant]
     Route: 048
     Dates: end: 20060914

REACTIONS (2)
  - LIVER DISORDER [None]
  - RHABDOMYOLYSIS [None]
